FAERS Safety Report 5064328-7 (Version None)
Quarter: 2006Q3

REPORT INFORMATION
  Report Type: 
  Country: None (occurrence: None)
  Receive Date: 20060728
  Receipt Date: 20060718
  Transmission Date: 20061208
  Serious: Yes (Hospitalization)
  Sender: FDA-Public Use
  Company Number: US-JNJFOC-20060703908

PATIENT
  Sex: Female
  Weight: 58.97 kg

DRUGS (8)
  1. REMICADE [Suspect]
  2. REMICADE [Suspect]
  3. REMICADE [Suspect]
     Indication: CROHN'S DISEASE
  4. COLAZOL [Concomitant]
     Indication: CROHN'S DISEASE
  5. IMURAN [Concomitant]
     Indication: CROHN'S DISEASE
  6. CYMBALTA [Concomitant]
     Indication: DEPRESSION
  7. BUSPAR [Concomitant]
  8. ^FLORA^ [Concomitant]

REACTIONS (6)
  - ARRHYTHMIA [None]
  - BLOOD GLUCOSE INCREASED [None]
  - HEPATIC FAILURE [None]
  - PNEUMONIA [None]
  - PULMONARY THROMBOSIS [None]
  - RENAL FAILURE [None]
